FAERS Safety Report 23364247 (Version 1)
Quarter: 2024Q1

REPORT INFORMATION
  Report Type: Report from Study
  Country: PE (occurrence: PE)
  Receive Date: 20240104
  Receipt Date: 20240104
  Transmission Date: 20240409
  Serious: Yes (Other)
  Sender: FDA-Public Use
  Company Number: PE-JNJFOC-20231274570

PATIENT
  Age: 58 Year
  Sex: Male
  Weight: 101 kg

DRUGS (1)
  1. DARATUMUMAB [Suspect]
     Active Substance: DARATUMUMAB
     Indication: Plasma cell myeloma
     Dosage: LAST DRUG APPLICATION: 26-DEC-2023
     Route: 042
     Dates: start: 20231226

REACTIONS (3)
  - Eye swelling [Unknown]
  - Chest discomfort [Unknown]
  - Infusion related reaction [Unknown]
